FAERS Safety Report 5906029-6 (Version None)
Quarter: 2008Q4

REPORT INFORMATION
  Report Type: 
  Country: None (occurrence: None)
  Receive Date: 20081002
  Receipt Date: 20080926
  Transmission Date: 20090506
  Serious: Yes (Other)
  Sender: FDA-Public Use
  Company Number: GB-ALLERGAN-0812166US

PATIENT
  Sex: Female

DRUGS (4)
  1. LACRI-LUBE [Suspect]
     Indication: DRUG USE FOR UNKNOWN INDICATION
     Route: 047
     Dates: start: 20080101
  2. LACRI-LUBE [Suspect]
     Route: 047
     Dates: start: 20060101
  3. LACRI-LUBE [Suspect]
     Route: 047
     Dates: start: 20040101
  4. VISCOTEARS [Concomitant]
     Indication: DRUG USE FOR UNKNOWN INDICATION

REACTIONS (1)
  - OPTIC NEURITIS [None]
